FAERS Safety Report 18469639 (Version 1)
Quarter: 2020Q4

REPORT INFORMATION
  Report Type: Report from Study
  Country: US (occurrence: US)
  Receive Date: 20201105
  Receipt Date: 20201105
  Transmission Date: 20210114
  Serious: Yes (Death, Other)
  Sender: FDA-Public Use
  Company Number: US-TAKEDA-2016US006712

PATIENT
  Age: 39 Year
  Sex: Male

DRUGS (2)
  1. PONATINIB [Suspect]
     Active Substance: PONATINIB
     Indication: CHRONIC MYELOID LEUKAEMIA
     Dosage: 45 MILLIGRAM, QD
     Route: 048
     Dates: start: 20160628
  2. PONATINIB [Suspect]
     Active Substance: PONATINIB
     Dosage: 30 MILLIGRAM, QD
     Route: 048

REACTIONS (10)
  - Pain in extremity [Recovered/Resolved]
  - Rash [Recovered/Resolved]
  - Platelet count decreased [Not Recovered/Not Resolved]
  - Arthralgia [Unknown]
  - Off label use [Unknown]
  - Malaise [Unknown]
  - Night sweats [Unknown]
  - Product dose omission issue [Unknown]
  - Death [Fatal]
  - Eye disorder [Unknown]

NARRATIVE: CASE EVENT DATE: 20201022
